FAERS Safety Report 18291591 (Version 1)
Quarter: 2020Q3

REPORT INFORMATION
  Report Type: Spontaneous
  Country: FR (occurrence: FR)
  Receive Date: 20200921
  Receipt Date: 20200921
  Transmission Date: 20201103
  Serious: Yes (Other)
  Sender: FDA-Public Use
  Company Number: FR-TEVA-2020-FR-1829594

PATIENT
  Age: 44 Year
  Sex: Female

DRUGS (3)
  1. KETAMINE [Concomitant]
     Active Substance: KETAMINE
     Indication: NEUROPATHY PERIPHERAL
     Route: 065
  2. VENLAFAXINE [Concomitant]
     Active Substance: VENLAFAXINE HYDROCHLORIDE
     Indication: NEUROPATHY PERIPHERAL
     Dosage: STARTED 2 YEARS PRIOR TO PRESENTATION
     Route: 065
  3. GABAPENTIN. [Suspect]
     Active Substance: GABAPENTIN
     Indication: NEUROPATHY PERIPHERAL
     Dosage: 1100 MILLIGRAM DAILY; TREATMENT STARTED 9 MONTHS PRIOR TO THE PRESENTATION
     Route: 065

REACTIONS (2)
  - Platelet disorder [Recovered/Resolved]
  - Mucocutaneous haemorrhage [Recovered/Resolved]
